FAERS Safety Report 22320823 (Version 2)
Quarter: 2023Q2

REPORT INFORMATION
  Report Type: Spontaneous
  Country: NL (occurrence: NL)
  Receive Date: 20230515
  Receipt Date: 20230517
  Transmission Date: 20230722
  Serious: No
  Sender: FDA-Public Use
  Company Number: NL-APIL-2314242US

PATIENT

DRUGS (1)
  1. OZURDEX [Suspect]
     Active Substance: DEXAMETHASONE
     Indication: Product used for unknown indication
     Dosage: 0.7 MG, SINGLE
     Route: 031
     Dates: start: 20230501, end: 20230501

REACTIONS (3)
  - Implantation complication [Recovered/Resolved]
  - Product administered at inappropriate site [Unknown]
  - Device issue [Unknown]

NARRATIVE: CASE EVENT DATE: 20230501
